FAERS Safety Report 8152389-8 (Version None)
Quarter: 2012Q1

REPORT INFORMATION
  Report Type: 
  Country: None (occurrence: None)
  Receive Date: 20120221
  Receipt Date: 20120208
  Transmission Date: 20120608
  Serious: No
  Sender: FDA-Public Use
  Company Number: US-CELGENEUS-163-21880-12010166

PATIENT
  Sex: Female

DRUGS (8)
  1. ARMODAFINIL [Concomitant]
     Dosage: 100 MILLIGRAM
     Route: 065
  2. ZOCOR [Concomitant]
     Dosage: 10 MILLIGRAM
     Route: 048
  3. REVLIMID [Suspect]
  4. KLOR-CON [Concomitant]
     Dosage: 20 MILLIEQUIVALENTS
     Route: 065
  5. PROTONIX [Concomitant]
     Dosage: 40 MILLIGRAM
     Route: 065
  6. PERCOCET [Concomitant]
     Dosage: 7.5 MILLIGRAM
     Route: 065
  7. MEGACE [Concomitant]
     Dosage: 20CC
     Route: 065
  8. REVLIMID [Suspect]
     Indication: MULTIPLE MYELOMA
     Dosage: 25 MILLIGRAM
     Route: 048
     Dates: start: 20101001, end: 20110101

REACTIONS (1)
  - DRUG INEFFECTIVE [None]
